FAERS Safety Report 19800892 (Version 3)
Quarter: 2021Q4

REPORT INFORMATION
  Report Type: Spontaneous
  Country: DE (occurrence: DE)
  Receive Date: 20210907
  Receipt Date: 20211026
  Transmission Date: 20220303
  Serious: Yes (Hospitalization, Other)
  Sender: FDA-Public Use
  Company Number: DE-TAKEDA-2021TUS054203

PATIENT
  Sex: Male

DRUGS (3)
  1. LISDEXAMFETAMINE DIMESYLATE [Suspect]
     Active Substance: LISDEXAMFETAMINE DIMESYLATE
     Indication: Attention deficit hyperactivity disorder
     Route: 065
  2. AMPHETAMINE SULFATE [Concomitant]
     Active Substance: AMPHETAMINE SULFATE
     Dosage: UNK
     Route: 065
  3. METHYLPHENIDATE [Concomitant]
     Active Substance: METHYLPHENIDATE
     Dosage: UNK
     Route: 065

REACTIONS (19)
  - Seizure [Recovering/Resolving]
  - Mental impairment [Unknown]
  - Anaphylactic shock [Unknown]
  - Feeling abnormal [Recovering/Resolving]
  - Eating disorder [Unknown]
  - Sleep disorder [Recovering/Resolving]
  - Gastric disorder [Unknown]
  - Apathy [Unknown]
  - Physical disability [Unknown]
  - Disturbance in attention [Unknown]
  - Blood pressure increased [Unknown]
  - Heart rate increased [Unknown]
  - Fatigue [Unknown]
  - Headache [Recovering/Resolving]
  - Loss of libido [Unknown]
  - Affect lability [Recovering/Resolving]
  - Arrhythmia [Unknown]
  - Panic attack [Unknown]
  - Drug ineffective [Unknown]
